FAERS Safety Report 9760360 (Version 2)
Quarter: 2013Q4

REPORT INFORMATION
  Report Type: Spontaneous
  Country: US (occurrence: US)
  Receive Date: 20131216
  Receipt Date: 20131216
  Transmission Date: 20140711
  Serious: No
  Sender: FDA-Public Use
  Company Number: US-GILEAD-2010-0029347

PATIENT
  Sex: Female

DRUGS (11)
  1. LETAIRIS [Suspect]
     Indication: PULMONARY ARTERIAL HYPERTENSION
     Route: 048
     Dates: start: 20100504, end: 20100520
  2. TRAZODONE [Concomitant]
  3. VAGIFEM [Concomitant]
  4. METOPROLOL [Concomitant]
  5. COUMADIN [Concomitant]
  6. ASMANEX [Concomitant]
  7. SIMVASTATIN [Concomitant]
  8. NEXIUM [Concomitant]
  9. ALBUTEROL [Concomitant]
  10. FERREX [Concomitant]
  11. PEPCID AC [Concomitant]

REACTIONS (2)
  - Sleep apnoea syndrome [Unknown]
  - Joint swelling [Unknown]
